FAERS Safety Report 15263474 (Version 4)
Quarter: 2019Q2

REPORT INFORMATION
  Report Type: Spontaneous
  Country: US (occurrence: US)
  Receive Date: 20180810
  Receipt Date: 20190627
  Transmission Date: 20190711
  Serious: No
  Sender: FDA-Public Use
  Company Number: US-PFIZER INC-2018318551

PATIENT
  Age: 53 Year
  Sex: Female

DRUGS (4)
  1. CYTOMEL [Concomitant]
     Active Substance: LIOTHYRONINE SODIUM
     Indication: HYPOTHYROIDISM
     Dosage: 10 UG, DAILY
     Dates: start: 201808
  2. ARMOUR THYROID [Concomitant]
     Active Substance: THYROID, PORCINE
     Indication: HYPOTHYROIDISM
     Dosage: 90 MG, DAILY
     Dates: start: 201807
  3. SYNTHROID [Concomitant]
     Active Substance: LEVOTHYROXINE SODIUM
     Indication: HYPOTHYROIDISM
     Dosage: 113 UG, DAILY
     Dates: start: 1995, end: 201806
  4. XELJANZ XR [Suspect]
     Active Substance: TOFACITINIB CITRATE
     Indication: RHEUMATOID ARTHRITIS
     Dosage: 11 MG, DAILY
     Route: 048
     Dates: start: 201702

REACTIONS (2)
  - Pre-existing condition improved [Not Recovered/Not Resolved]
  - Therapeutic response unexpected [Not Recovered/Not Resolved]

NARRATIVE: CASE EVENT DATE: 201806
